FAERS Safety Report 24755928 (Version 1)
Quarter: 2024Q4

REPORT INFORMATION
  Report Type: Spontaneous
  Country: US (occurrence: US)
  Receive Date: 20241219
  Receipt Date: 20241219
  Transmission Date: 20250115
  Serious: Yes (Other)
  Sender: BIOMARIN
  Company Number: US-BIOMARINAP-US-2024-162569

PATIENT

DRUGS (1)
  1. PALYNZIQ [Suspect]
     Active Substance: PEGVALIASE-PQPZ
     Indication: Phenylketonuria
     Dosage: ,
     Route: 058

REACTIONS (5)
  - Anaphylactic reaction [Unknown]
  - Injection site pain [Unknown]
  - Nausea [Unknown]
  - Arthralgia [Unknown]
  - Muscle fatigue [Unknown]
